FAERS Safety Report 22147119 (Version 1)
Quarter: 2023Q1

REPORT INFORMATION
  Report Type: Spontaneous
  Country: SE (occurrence: SE)
  Receive Date: 20230328
  Receipt Date: 20230328
  Transmission Date: 20230418
  Serious: Yes (Hospitalization)
  Sender: FDA-Public Use
  Company Number: None

PATIENT
  Age: 66 Year
  Sex: Female

DRUGS (7)
  1. OXALIPLATIN [Suspect]
     Active Substance: OXALIPLATIN
     Indication: Rectal cancer
     Dosage: FIRST DOSE?ROA-20045000
     Route: 042
     Dates: start: 20230112
  2. POLYETHYLENE GLYCOL 4000 [Concomitant]
     Active Substance: POLYETHYLENE GLYCOL 4000
     Indication: Product used for unknown indication
     Dosage: 1 SACHET X 1-3 WHEN NEEDED UNTIL FURTHER NOTICE
     Dates: start: 20221205
  3. MIRTAZAPINE [Concomitant]
     Active Substance: MIRTAZAPINE
     Indication: Product used for unknown indication
     Dosage: 0.5-1 TABLET WHEN NEEDED UNTIL FURTHER NOTICE
     Dates: start: 20220423
  4. ZOLPIDEM TARTRATE [Concomitant]
     Active Substance: ZOLPIDEM TARTRATE
     Indication: Product used for unknown indication
     Dosage: 1 TABLET X 1 WHEN NEEDED
     Dates: start: 20190416
  5. LOPERAMIDE [Concomitant]
     Active Substance: LOPERAMIDE
     Indication: Product used for unknown indication
     Dosage: 1-2 CAPSULES WHEN NEEDED UNTIL FURTHER NOTICE. MAXIMUM 8/DAY
     Dates: start: 20221202
  6. Kaleorid 750 mg depot tablet [Concomitant]
     Indication: Product used for unknown indication
     Dosage: 750MG
     Dates: start: 20230111
  7. HERBALS\KARAYA GUM [Concomitant]
     Active Substance: HERBALS\KARAYA GUM
     Indication: Product used for unknown indication
     Dosage: 1 SACHET X 1 WHEN NEEDED.?DOSE: 1 (UNIT NOT SPECIFIED)
     Dates: start: 20221219

REACTIONS (1)
  - Hypertension [Recovering/Resolving]

NARRATIVE: CASE EVENT DATE: 20230112
